FAERS Safety Report 18930046 (Version 1)
Quarter: 2021Q1

REPORT INFORMATION
  Report Type: Spontaneous
  Country: IL (occurrence: IL)
  Receive Date: 20210223
  Receipt Date: 20210223
  Transmission Date: 20210420
  Serious: Yes (Other)
  Sender: FDA-Public Use
  Company Number: IL-TEVA-2021-IL-1882754

PATIENT
  Sex: Female

DRUGS (1)
  1. CARBOPLATIN TEVA [Suspect]
     Active Substance: CARBOPLATIN
     Dosage: DOSAGE: 257
     Route: 065
     Dates: start: 20210202

REACTIONS (5)
  - Oxygen saturation decreased [Unknown]
  - Burning sensation [Unknown]
  - Nausea [Unknown]
  - Feeling abnormal [Unknown]
  - Erythema [Unknown]
